FAERS Safety Report 8475262-4 (Version None)
Quarter: 2012Q2

REPORT INFORMATION
  Report Type: 
  Country: None (occurrence: None)
  Receive Date: 20120628
  Receipt Date: 20120618
  Transmission Date: 20120825
  Serious: Yes (Hospitalization, Other)
  Sender: FDA-Public Use
  Company Number: US-PFIZER INC-ENC200700046

PATIENT
  Sex: Female
  Weight: 91.4 kg

DRUGS (6)
  1. ARGATROBAN [Suspect]
     Indication: HEPARIN-INDUCED THROMBOCYTOPENIA
     Dosage: 2 MCG/KG/MIN, FREQUENCY: WITH FREQUENT TITRATION
     Route: 042
     Dates: start: 20070325, end: 20070331
  2. FRAGMIN [Concomitant]
     Dosage: UNK
     Dates: start: 20070306, end: 20070325
  3. ZYVOX [Suspect]
     Indication: URINARY TRACT INFECTION
     Dosage: FREQUENCY:  BID Q12 HRS
     Dates: start: 20070327
  4. FAMOTIDINE [Concomitant]
     Dates: start: 20070322
  5. METHYLPEDNISOLONE SODIUM SUCCINATE [Concomitant]
  6. WARFARIN SODIUM [Concomitant]
     Dates: start: 20070322

REACTIONS (2)
  - COAGULATION TIME ABNORMAL [None]
  - DRUG INTERACTION [None]
